FAERS Safety Report 10337197 (Version 1)
Quarter: 2014Q3

REPORT INFORMATION
  Report Type: Report from Study
  Country: US (occurrence: US)
  Receive Date: 20140723
  Receipt Date: 20140723
  Transmission Date: 20150326
  Serious: Yes (Other)
  Sender: FDA-Public Use
  Company Number: US-GILEAD-2014-0109470

PATIENT
  Sex: Female

DRUGS (3)
  1. SOFOSBUVIR [Suspect]
     Active Substance: SOFOSBUVIR
     Indication: CHRONIC HEPATITIS C
     Dosage: 400 MG, UNK
     Route: 065
  2. PEGASYS [Concomitant]
     Active Substance: PEGINTERFERON ALFA-2A
  3. RIBAVIRIN. [Concomitant]
     Active Substance: RIBAVIRIN

REACTIONS (5)
  - Gastric infection [Unknown]
  - Sleep disorder [Unknown]
  - Nausea [Unknown]
  - Weight decreased [Unknown]
  - Dyspnoea [Unknown]
